FAERS Safety Report 19612101 (Version 5)
Quarter: 2022Q1

REPORT INFORMATION
  Report Type: Report from Study
  Country: US (occurrence: US)
  Receive Date: 20210726
  Receipt Date: 20220205
  Transmission Date: 20220423
  Serious: No
  Sender: FDA-Public Use
  Company Number: NVSC2021US162556

PATIENT
  Sex: Male

DRUGS (2)
  1. ENTRESTO [Suspect]
     Active Substance: SACUBITRIL\VALSARTAN
     Indication: Extrasystoles
     Dosage: 1 DF, BID (24/26 MG)
     Route: 048
     Dates: start: 20210702
  2. ENTRESTO [Suspect]
     Active Substance: SACUBITRIL\VALSARTAN
     Dosage: 1 DF, QD (24/26 MG)
     Route: 065

REACTIONS (8)
  - Malaise [Unknown]
  - Dizziness [Unknown]
  - Fatigue [Unknown]
  - Throat clearing [Unknown]
  - Dyspnoea [Unknown]
  - Inappropriate schedule of product administration [Unknown]
  - Product use in unapproved indication [Unknown]
  - Cough [Unknown]
